FAERS Safety Report 7839844 (Version 3)
Quarter: 2014Q1

REPORT INFORMATION
  Report Type: Spontaneous
  Country: US (occurrence: US)
  Receive Date: 20110303
  Receipt Date: 20140205
  Transmission Date: 20141002
  Serious: Yes (Hospitalization)
  Sender: FDA-Public Use
  Company Number: US-B.I. PHARMACEUTICALS,INC./RIDGEFIELD-2011-BP-05915BP

PATIENT
  Sex: Male
  Weight: 90.72 kg

DRUGS (11)
  1. PRADAXA [Suspect]
     Indication: PRODUCT USED FOR UNKNOWN INDICATION
     Dates: start: 20110101, end: 20110216
  2. PLAVIX [Concomitant]
     Dates: end: 201102
  3. ALLOPURINOL [Concomitant]
     Dosage: 300 MG
     Route: 048
  4. KLOR-CON [Concomitant]
     Dosage: 10 MEQ
     Route: 048
  5. GLYBURIDE [Concomitant]
     Dosage: 5 MG
     Route: 048
  6. ASPIRIN LOW DOSE [Concomitant]
     Dosage: 81 MG
     Route: 048
  7. VYTORIN [Concomitant]
     Route: 048
  8. METOPROLOL TARTRATE [Concomitant]
     Dosage: 50 MG
     Route: 048
  9. DIOVAN [Concomitant]
     Dosage: 160 MG
     Route: 048
  10. CALCITRIOL [Concomitant]
     Dosage: 0.25 MCG
     Route: 048
  11. AMLODIPINE BESYLATE [Concomitant]
     Dosage: 10 MG
     Route: 048

REACTIONS (4)
  - Rectal haemorrhage [Unknown]
  - Diverticulitis [Unknown]
  - Abdominal pain upper [Unknown]
  - Haematochezia [Unknown]
